FAERS Safety Report 8071383-9 (Version None)
Quarter: 2012Q1

REPORT INFORMATION
  Report Type: 
  Country: None (occurrence: None)
  Receive Date: 20120125
  Receipt Date: 20120123
  Transmission Date: 20120608
  Serious: Yes (Other)
  Sender: FDA-Public Use
  Company Number: US-TEVA-311624USA

PATIENT
  Sex: Male

DRUGS (1)
  1. CLARAVIS [Suspect]
     Indication: ACNE
     Route: 048
     Dates: end: 20111101

REACTIONS (2)
  - SUICIDAL IDEATION [None]
  - AGGRESSION [None]
